FAERS Safety Report 15744943 (Version 2)
Quarter: 2023Q1

REPORT INFORMATION
  Report Type: Spontaneous
  Country: GB (occurrence: GB)
  Receive Date: 20181220
  Receipt Date: 20230327
  Transmission Date: 20230417
  Serious: Yes (Other)
  Sender: FDA-Public Use
  Company Number: GB-SA-2018SA387664

PATIENT
  Age: 54 Year
  Sex: Female

DRUGS (2)
  1. ALEMTUZUMAB [Suspect]
     Active Substance: ALEMTUZUMAB
     Indication: Multiple sclerosis
     Dosage: UNK
     Route: 041
     Dates: start: 2007, end: 2007
  2. ALEMTUZUMAB [Suspect]
     Active Substance: ALEMTUZUMAB
     Dosage: UNK
     Route: 041
     Dates: start: 2008, end: 2008

REACTIONS (9)
  - Basedow^s disease [Recovering/Resolving]
  - Endocrine ophthalmopathy [Recovering/Resolving]
  - Disorder of globe [Recovering/Resolving]
  - Extraocular muscle disorder [Recovering/Resolving]
  - Exophthalmos [Recovering/Resolving]
  - Eyelid retraction [Recovering/Resolving]
  - Conjunctival oedema [Recovering/Resolving]
  - Optic neuropathy [Recovering/Resolving]
  - Pain [Recovering/Resolving]

NARRATIVE: CASE EVENT DATE: 20090101
